FAERS Safety Report 12448446 (Version 1)
Quarter: 2016Q2

REPORT INFORMATION
  Report Type: Spontaneous
  Country: SE (occurrence: SE)
  Receive Date: 20160608
  Receipt Date: 20160608
  Transmission Date: 20160815
  Serious: Yes (Death, Hospitalization, Other)
  Sender: FDA-Public Use
  Company Number: SE-PFIZER INC-2016291199

PATIENT
  Age: 74 Year
  Sex: Male

DRUGS (22)
  1. BISOPROLOL SANDOZ [Concomitant]
     Active Substance: BISOPROLOL
     Dosage: UNK
     Route: 065
  2. ACETYLCYSTEIN MEDA [Concomitant]
     Dosage: UNK
     Route: 065
  3. BETOLVEX /00056201/ [Concomitant]
     Active Substance: CYANOCOBALAMIN
     Dosage: UNK
     Route: 065
  4. LAKTULOS MEDA [Concomitant]
     Dosage: UNK
     Route: 065
  5. FOLACIN /00024201/ [Concomitant]
     Active Substance: FOLIC ACID
     Dosage: UNK
     Route: 065
  6. HUMALOG [Concomitant]
     Active Substance: INSULIN LISPRO
     Dosage: UNK
     Route: 065
  7. DIVISUN [Concomitant]
     Dosage: UNK
     Route: 065
  8. ALLOPURINOL NORDIC DRUGS [Concomitant]
     Dosage: UNK
     Route: 065
  9. KALEORID [Concomitant]
     Active Substance: POTASSIUM CHLORIDE
     Dosage: UNK
     Route: 065
  10. NATRIUMKLORID [Concomitant]
     Dosage: UNK
     Route: 065
  11. LEVEMIR [Concomitant]
     Active Substance: INSULIN DETEMIR
     Dosage: UNK
     Route: 065
  12. METOLAZON ABCUR [Concomitant]
     Dosage: UNK
     Route: 065
  13. ETALPHA [Concomitant]
     Active Substance: ALFACALCIDOL
     Dosage: UNK
     Route: 065
  14. OXYCONTIN [Concomitant]
     Active Substance: OXYCODONE HYDROCHLORIDE
     Dosage: UNK
     Route: 065
  15. METHOTREXATE SODIUM. [Suspect]
     Active Substance: METHOTREXATE SODIUM
     Indication: PSORIATIC ARTHROPATHY
     Dosage: UNK (FIRST WEEK TOOK 3 TABLETS, SECOND WEEK 4 TABLETS)
     Route: 065
     Dates: start: 20160404, end: 20160411
  16. INOLAXOL /00561901/ [Concomitant]
     Dosage: UNK
     Route: 065
  17. FURIX [Concomitant]
     Active Substance: FUROSEMIDE
     Dosage: UNK
     Route: 065
  18. WARAN [Concomitant]
     Active Substance: WARFARIN SODIUM
     Dosage: UNK
     Route: 065
  19. PREDNISOLON PFIZER [Concomitant]
     Active Substance: PREDNISOLONE
     Dosage: UNK
     Route: 065
  20. TERRACORTRIL [Concomitant]
     Dosage: UNK
     Route: 065
  21. OXYNORM [Concomitant]
     Active Substance: OXYCODONE HYDROCHLORIDE
     Dosage: UNK
     Route: 065
  22. BEZALIP [Concomitant]
     Active Substance: BEZAFIBRATE
     Dosage: UNK
     Route: 065

REACTIONS (12)
  - Cardiac arrest [Fatal]
  - Multiple organ dysfunction syndrome [Fatal]
  - Fatigue [Unknown]
  - Pancytopenia [Fatal]
  - Pulseless electrical activity [Fatal]
  - Gastrointestinal haemorrhage [Unknown]
  - Acute kidney injury [Unknown]
  - Pseudomonal sepsis [Unknown]
  - Pain [Unknown]
  - Balanoposthitis [Unknown]
  - Gastric disorder [Unknown]
  - Fungal infection [Unknown]

NARRATIVE: CASE EVENT DATE: 201604
